FAERS Safety Report 20474860 (Version 4)
Quarter: 2022Q3

REPORT INFORMATION
  Report Type: Report from Study
  Country: US (occurrence: US)
  Receive Date: 20220215
  Receipt Date: 20220805
  Transmission Date: 20221026
  Serious: No
  Sender: FDA-Public Use
  Company Number: US-KYOWAKIRIN-2022BKK001500

PATIENT

DRUGS (1)
  1. CRYSVITA [Suspect]
     Active Substance: BUROSUMAB-TWZA
     Indication: Hereditary hypophosphataemic rickets
     Dosage: 90 MG, EVERY 4 WEEKS
     Route: 058
     Dates: start: 202112

REACTIONS (6)
  - Nausea [Unknown]
  - Decreased appetite [Unknown]
  - Peripheral swelling [Unknown]
  - Constipation [Unknown]
  - Injection site pruritus [Recovered/Resolved]
  - Scratch [Recovered/Resolved]
